FAERS Safety Report 20634549 (Version 3)
Quarter: 2022Q2

REPORT INFORMATION
  Report Type: Report from Study
  Country: US (occurrence: US)
  Receive Date: 20220325
  Receipt Date: 20220407
  Transmission Date: 20220721
  Serious: No
  Sender: FDA-Public Use
  Company Number: US-NOVARTISTESTPH-NVSC2022US067424

PATIENT
  Sex: Female
  Weight: 58.322 kg

DRUGS (1)
  1. TREPROSTINIL [Suspect]
     Active Substance: TREPROSTINIL
     Indication: Pulmonary arterial hypertension
     Dosage: (66NG/KG/MIN), CONT
     Route: 042
     Dates: start: 20220111

REACTIONS (3)
  - Dyspnoea exertional [Unknown]
  - Headache [Unknown]
  - Pain in jaw [Unknown]
